FAERS Safety Report 5221750-3 (Version None)
Quarter: 2007Q1

REPORT INFORMATION
  Report Type: 
  Country: None (occurrence: None)
  Receive Date: 20070124
  Receipt Date: 20070116
  Transmission Date: 20070707
  Serious: Yes (Hospitalization)
  Sender: FDA-Public Use
  Company Number: S07-USA-00216-01

PATIENT
  Age: 82 Year
  Sex: Female
  Weight: 41 kg

DRUGS (7)
  1. NAMENDA [Suspect]
     Dosage: 20 MG QD PO
     Route: 048
     Dates: start: 20061101, end: 20061201
  2. ARICEPT [Suspect]
     Indication: DEMENTIA ALZHEIMER'S TYPE
     Dosage: 20 MG QD PO
     Route: 048
     Dates: start: 20061101, end: 20061201
  3. ARICEPT [Suspect]
     Indication: DEMENTIA ALZHEIMER'S TYPE
     Dosage: 5 MG QD PO
     Route: 048
     Dates: end: 20060901
  4. ARICEPT [Suspect]
     Indication: DEMENTIA ALZHEIMER'S TYPE
     Dosage: 10 MG QD PO
     Route: 048
     Dates: start: 20060901, end: 20061101
  5. RISPERDAL [Suspect]
  6. EFFEXOR [Suspect]
  7. REMERON [Suspect]

REACTIONS (5)
  - AGGRESSION [None]
  - AGITATION [None]
  - DISEASE PROGRESSION [None]
  - FAILURE TO THRIVE [None]
  - ORAL INTAKE REDUCED [None]
